FAERS Safety Report 15246089 (Version 1)
Quarter: 2018Q3

REPORT INFORMATION
  Report Type: Spontaneous
  Country: CA (occurrence: CA)
  Receive Date: 20180806
  Receipt Date: 20180806
  Transmission Date: 20181010
  Serious: Yes (Other)
  Sender: FDA-Public Use
  Company Number: CA-TEVA-385462USA

PATIENT
  Sex: Male

DRUGS (1)
  1. TEVA?OXYCOCET [Suspect]
     Active Substance: ACETAMINOPHEN\OXYCODONE HYDROCHLORIDE
     Indication: PAIN MANAGEMENT
     Dates: start: 2008

REACTIONS (25)
  - Abdominal rigidity [Unknown]
  - Decreased appetite [Unknown]
  - Paranoia [Unknown]
  - Economic problem [Unknown]
  - Incontinence [Unknown]
  - Personality change [Recovering/Resolving]
  - Drug ineffective [Unknown]
  - Insomnia [Unknown]
  - Dementia [Unknown]
  - Hyperhidrosis [Unknown]
  - Memory impairment [Unknown]
  - Stress [Unknown]
  - Alopecia [Recovering/Resolving]
  - Mental disorder [Unknown]
  - Overdose [Unknown]
  - Nightmare [Unknown]
  - Feeling abnormal [Unknown]
  - Pain [Unknown]
  - Mood altered [Unknown]
  - Visual impairment [Unknown]
  - Anxiety [Unknown]
  - Dry mouth [Unknown]
  - Weight decreased [Recovered/Resolved]
  - Hypoaesthesia [Unknown]
  - Personal relationship issue [Unknown]
